FAERS Safety Report 5276942-4 (Version None)
Quarter: 2007Q1

REPORT INFORMATION
  Report Type: 
  Country: None (occurrence: None)
  Receive Date: 20070327
  Receipt Date: 20070315
  Transmission Date: 20070707
  Serious: Yes (Hospitalization)
  Sender: FDA-Public Use
  Company Number: ITWYE044115MAR07

PATIENT
  Sex: Male

DRUGS (1)
  1. ENBREL [Suspect]
     Indication: PSORIATIC ARTHROPATHY
     Dosage: 100 MG WEEKLY
     Route: 058
     Dates: start: 20070213, end: 20070306

REACTIONS (2)
  - LYMPHANGITIS [None]
  - URTICARIA GENERALISED [None]
